FAERS Safety Report 8507776-2 (Version None)
Quarter: 2012Q3

REPORT INFORMATION
  Report Type: 
  Country: None (occurrence: None)
  Receive Date: 20120713
  Receipt Date: 20120705
  Transmission Date: 20120928
  Serious: Yes (Other)
  Sender: FDA-Public Use
  Company Number: US-CELGENEUS-163-C5013-12062708

PATIENT
  Sex: Female
  Weight: 60.927 kg

DRUGS (14)
  1. LENALIDOMIDE [Suspect]
     Dosage: 7.5 MILLIGRAM
     Route: 048
     Dates: start: 20120619
  2. IMODIUM [Concomitant]
     Route: 065
     Dates: start: 20090101
  3. LACTATED RINGER'S [Concomitant]
     Indication: DEHYDRATION
     Dosage: 1000 MILLILITER
     Route: 065
     Dates: start: 20120501, end: 20120501
  4. PEPCID [Concomitant]
     Dosage: 20 MILLIGRAM
     Route: 065
     Dates: start: 20120501
  5. ACID REDUCER [Concomitant]
     Route: 065
     Dates: start: 20090101
  6. LENALIDOMIDE [Suspect]
     Dosage: 7.5 MILLIGRAM
     Route: 048
     Dates: start: 20120320
  7. ASPIRIN [Concomitant]
     Dosage: 81 MILLIGRAM
     Route: 065
     Dates: start: 20090101
  8. LENALIDOMIDE [Suspect]
     Dosage: 7.5 MILLIGRAM
     Route: 048
     Dates: start: 20120612, end: 20120615
  9. ALLOPURINOL [Concomitant]
     Indication: PROPHYLAXIS
     Dosage: 300 MILLIGRAM
     Route: 065
     Dates: start: 20120309
  10. LACTATED RINGER'S [Concomitant]
     Dosage: 1000 MILLILITER
     Route: 065
     Dates: start: 20120426, end: 20120426
  11. IBUPROFEN [Concomitant]
     Indication: NECK PAIN
     Route: 065
     Dates: start: 19900101
  12. LISINOPRIL [Concomitant]
     Indication: HYPERTENSION
     Dosage: 20 MILLIGRAM
     Route: 065
     Dates: start: 20060101
  13. LACTATED RINGER'S [Concomitant]
     Dosage: 1000 MILLILITER
     Route: 065
     Dates: start: 20120605, end: 20120605
  14. OXYCODONE/ACETAMINOPHEN [Concomitant]
     Indication: FLANK PAIN
     Dosage: 5/325MG
     Route: 065
     Dates: start: 20120520

REACTIONS (1)
  - ADENOCARCINOMA PANCREAS [None]
